FAERS Safety Report 12343273 (Version 6)
Quarter: 2016Q3

REPORT INFORMATION
  Report Type: Report from Study
  Country: RU (occurrence: RU)
  Receive Date: 20160506
  Receipt Date: 20160815
  Transmission Date: 20161109
  Serious: Yes (Death, Hospitalization, Other)
  Sender: FDA-Public Use
  Company Number: RU-ALEXION-A201603113

PATIENT
  Age: 11 Month
  Sex: Male
  Weight: 3.3 kg

DRUGS (13)
  1. ENB-0040 [Suspect]
     Active Substance: ASFOTASE ALFA
     Dosage: 2 MG/KG, TIW
     Route: 058
     Dates: start: 20160418, end: 20160422
  2. CALCIUM CHLORIDE. [Concomitant]
     Active Substance: CALCIUM CHLORIDE
     Indication: PRODUCT USED FOR UNKNOWN INDICATION
     Route: 065
  3. BERODUAL [Concomitant]
     Active Substance: FENOTEROL HYDROBROMIDE\IPRATROPIUM BROMIDE
     Indication: PRODUCT USED FOR UNKNOWN INDICATION
     Route: 065
  4. PULMICORT TURBUHALER [Concomitant]
     Active Substance: BUDESONIDE
     Indication: PRODUCT USED FOR UNKNOWN INDICATION
     Route: 065
  5. ENB-0040 [Suspect]
     Active Substance: ASFOTASE ALFA
     Indication: HYPOPHOSPHATASIA
     Dosage: UNK UNK, TIW
     Route: 058
     Dates: start: 20160414
  6. ENB-0040 [Suspect]
     Active Substance: ASFOTASE ALFA
     Dosage: 3 MG/KG, TIW
     Route: 058
  7. ENB-0040 [Suspect]
     Active Substance: ASFOTASE ALFA
     Dosage: 2 MG/KG, TIW
     Route: 058
     Dates: start: 20160506, end: 20160720
  8. ENB-0040 [Suspect]
     Active Substance: ASFOTASE ALFA
     Dosage: 1 MG/KG, QD
     Route: 058
     Dates: start: 20160414, end: 20160416
  9. VITAMIN B6 [Concomitant]
     Active Substance: PYRIDOXINE HYDROCHLORIDE
     Indication: PRODUCT USED FOR UNKNOWN INDICATION
     Route: 065
  10. ENB-0040 [Suspect]
     Active Substance: ASFOTASE ALFA
     Dosage: 2 MG/KG, TIW
     Route: 058
  11. ENB-0040 [Suspect]
     Active Substance: ASFOTASE ALFA
     Dosage: 3 MG/KG, UNK
     Route: 058
     Dates: start: 20160502, end: 20160504
  12. ENB-0040 [Suspect]
     Active Substance: ASFOTASE ALFA
     Dosage: 1 MG/KG, UNK
     Route: 058
     Dates: start: 20160427, end: 20160429
  13. FLUCONAZOLE. [Concomitant]
     Active Substance: FLUCONAZOLE
     Indication: PRODUCT USED FOR UNKNOWN INDICATION
     Route: 065

REACTIONS (8)
  - Apnoea [Recovered/Resolved]
  - Multiple organ dysfunction syndrome [Fatal]
  - Blood calcium decreased [Recovered/Resolved]
  - Pseudomonas infection [Unknown]
  - Respiratory rate increased [Recovered/Resolved]
  - Respiratory distress [Not Recovered/Not Resolved]
  - Respiratory failure [Fatal]
  - Bronchiolitis [Not Recovered/Not Resolved]

NARRATIVE: CASE EVENT DATE: 20160423
